FAERS Safety Report 4292319-2 (Version None)
Quarter: 2004Q1

REPORT INFORMATION
  Report Type: 
  Country: None (occurrence: None)
  Receive Date: 20040126
  Receipt Date: 20031124
  Transmission Date: 20041129
  Serious: No
  Sender: FDA-Public Use
  Company Number: USA031049106

PATIENT
  Age: 71 Year
  Sex: Female

DRUGS (2)
  1. FORTEO [Suspect]
     Indication: OSTEOPOROSIS
     Dates: start: 20030818, end: 20031020
  2. IMDUR [Concomitant]

REACTIONS (6)
  - ABDOMINAL PAIN UPPER [None]
  - DYSPNOEA [None]
  - INCREASED UPPER AIRWAY SECRETION [None]
  - MUSCLE CRAMP [None]
  - NAUSEA [None]
  - VIRAL INFECTION [None]
